FAERS Safety Report 9340219 (Version 1)
Quarter: 2013Q2

REPORT INFORMATION
  Report Type: Spontaneous
  Country: FR (occurrence: FR)
  Receive Date: 20130610
  Receipt Date: 20130610
  Transmission Date: 20140414
  Serious: Yes (Life-Threatening, Hospitalization)
  Sender: FDA-Public Use
  Company Number: FR-BRISTOL-MYERS SQUIBB COMPANY-18999870

PATIENT
  Age: 57 Year
  Sex: Female

DRUGS (11)
  1. GLUCOPHAGE TABS 500 MG [Suspect]
     Route: 048
     Dates: start: 20080701, end: 20130404
  2. TAHOR [Concomitant]
     Dosage: TABS
     Route: 048
  3. NORSET [Concomitant]
     Dosage: TABS
     Route: 048
  4. PERINDOPRIL [Concomitant]
     Route: 048
  5. OMEPRAZOLE [Concomitant]
     Route: 048
  6. PLAVIX [Concomitant]
     Route: 048
  7. FLUDEX [Concomitant]
     Route: 048
  8. AMLOR [Concomitant]
     Route: 048
  9. SERESTA [Concomitant]
     Route: 048
  10. DOLIPRANE [Concomitant]
     Route: 048
  11. LANTUS [Concomitant]
     Dosage: 16IU
     Route: 058

REACTIONS (2)
  - Lactic acidosis [Recovered/Resolved]
  - Drug level increased [Recovered/Resolved]
